FAERS Safety Report 6325473-9 (Version None)
Quarter: 2009Q3

REPORT INFORMATION
  Report Type: 
  Country: None (occurrence: None)
  Receive Date: 20090824
  Receipt Date: 20090710
  Transmission Date: 20100115
  Serious: No
  Sender: FDA-Public Use
  Company Number: US-ABBOTT-09P-163-0584821-00

PATIENT
  Sex: Female

DRUGS (4)
  1. NIASPAN [Suspect]
     Indication: LOW DENSITY LIPOPROTEIN DECREASED
     Route: 048
     Dates: start: 20090618
  2. ASPIRIN [Concomitant]
     Indication: DRUG USE FOR UNKNOWN INDICATION
  3. M.V.I. [Concomitant]
     Indication: DRUG USE FOR UNKNOWN INDICATION
  4. AVAPRO [Concomitant]
     Indication: DRUG USE FOR UNKNOWN INDICATION

REACTIONS (1)
  - FEELING HOT [None]
